FAERS Safety Report 13869195 (Version 1)
Quarter: 2017Q3

REPORT INFORMATION
  Report Type: Report from Study
  Country: BR (occurrence: BR)
  Receive Date: 20170815
  Receipt Date: 20170815
  Transmission Date: 20171127
  Serious: Yes (Other)
  Sender: FDA-Public Use
  Company Number: BR-PFIZER INC-2017344673

PATIENT
  Age: 45 Year
  Sex: Female
  Weight: 65 kg

DRUGS (2)
  1. PALBOCICLIB [Suspect]
     Active Substance: PALBOCICLIB
     Indication: BREAST CANCER
     Dosage: 125 MG (ONE CAPSULE), 1X/DAY
     Route: 048
     Dates: start: 20170710
  2. FASLODEX [Interacting]
     Active Substance: FULVESTRANT
     Indication: BREAST CANCER
     Dosage: 250 MG (2 VIALS), MONTHLY
     Route: 030
     Dates: start: 20170710

REACTIONS (4)
  - Drug interaction [Unknown]
  - Paraesthesia [Not Recovered/Not Resolved]
  - Headache [Recovering/Resolving]
  - Chloasma [Not Recovered/Not Resolved]

NARRATIVE: CASE EVENT DATE: 20170808
